FAERS Safety Report 4681356-1 (Version None)
Quarter: 2005Q2

REPORT INFORMATION
  Report Type: 
  Country: None (occurrence: None)
  Receive Date: 20050601
  Receipt Date: 20050525
  Transmission Date: 20051028
  Serious: Yes (Hospitalization)
  Sender: FDA-Public Use
  Company Number: CIP05001217

PATIENT
  Age: 77 Year
  Sex: Female

DRUGS (3)
  1. ACTONEL [Suspect]
     Dosage: 35 MG ONCE WEEKLY, ORAL
     Route: 048
  2. ASPIRIN [Concomitant]
  3. POTASSIUM ACETATE [Concomitant]

REACTIONS (4)
  - ARRHYTHMIA [None]
  - HEART RATE INCREASED [None]
  - OEDEMA PERIPHERAL [None]
  - STOMACH DISCOMFORT [None]
